FAERS Safety Report 9825979 (Version 1)
Quarter: 2013Q4

REPORT INFORMATION
  Report Type: Spontaneous
  Country: US (occurrence: None)
  Receive Date: 20131107
  Receipt Date: 20131107
  Transmission Date: 20140711
  Serious: Yes (Hospitalization)
  Sender: FDA-Public Use
  Company Number: 2013AP004584

PATIENT
  Age: 64 Year
  Sex: Female
  Weight: 55 kg

DRUGS (15)
  1. CARVEDILOL [Suspect]
     Dosage: 12.5 MG;BID
  2. METOPROLOL TARTRATE [Concomitant]
  3. NIFEDIPINE [Concomitant]
  4. FUROSEMIDE [Concomitant]
  5. CYANOCOBALAMIN [Concomitant]
  6. HYDROCHLOROTHIAZIDE/TRIAMTERENE [Concomitant]
  7. CALCIUM D3 /01483701/ [Concomitant]
  8. FERROUS GLUCONATE [Concomitant]
  9. FONDAPARINUX SODIUM [Concomitant]
  10. PANTOPRAZOLE [Concomitant]
  11. SODIUM DIOCTYL SULFOSUCCINATE [Concomitant]
  12. SENNA /00142201/ [Concomitant]
  13. DALTEPARIN SODIUM [Concomitant]
  14. WARFARIN [Concomitant]
  15. FERROUS SULFATE [Concomitant]

REACTIONS (1)
  - Thrombocytopenia [None]
